FAERS Safety Report 15347079 (Version 1)
Quarter: 2018Q3

REPORT INFORMATION
  Report Type: Spontaneous
  Country: ES (occurrence: ES)
  Receive Date: 20180904
  Receipt Date: 20180904
  Transmission Date: 20181010
  Serious: Yes (Hospitalization)
  Sender: FDA-Public Use
  Company Number: ES-PFIZER INC-2018348804

PATIENT
  Age: 70 Year
  Sex: Female

DRUGS (1)
  1. VINCRISTINE SULFATE. [Suspect]
     Active Substance: VINCRISTINE SULFATE
     Indication: NON-HODGKIN^S LYMPHOMA STAGE IV
     Dosage: UNK
     Dates: start: 2013, end: 2013

REACTIONS (10)
  - Oedema peripheral [Unknown]
  - Mitral valve incompetence [Unknown]
  - Rales [Unknown]
  - Nocturia [Unknown]
  - Bronchial disorder [Unknown]
  - Pulmonary hypertension [Unknown]
  - Cardiomyopathy [Unknown]
  - Cough [Unknown]
  - Dyspnoea [Unknown]
  - Chest X-ray abnormal [Unknown]

NARRATIVE: CASE EVENT DATE: 2013
